FAERS Safety Report 5630407-6 (Version None)
Quarter: 2008Q1

REPORT INFORMATION
  Report Type: 
  Country: None (occurrence: None)
  Receive Date: 20080219
  Receipt Date: 20080214
  Transmission Date: 20080703
  Serious: Yes (Death, Hospitalization)
  Sender: FDA-Public Use
  Company Number: PHEH2005US10088

PATIENT
  Age: 67 Year
  Sex: Female

DRUGS (17)
  1. GLEEVEC [Suspect]
     Indication: CHRONIC MYELOID LEUKAEMIA
     Dosage: 300 MG, QD
     Route: 048
     Dates: start: 20050701, end: 20060705
  2. GLEEVEC [Suspect]
     Dosage: UNK, NO TREATMENT
     Dates: start: 20060605
  3. GLEEVEC [Suspect]
     Dosage: 600 MG, QD
     Route: 048
     Dates: start: 20050613, end: 20050722
  4. GLEEVEC [Suspect]
     Dosage: 100 MG, QD
     Route: 048
  5. HUMALOG [Concomitant]
     Dosage: SLIDING SCALE PRN
     Route: 058
  6. LEVOXYL [Concomitant]
     Indication: HYPOTHYROIDISM
     Dosage: 0.75 MG, QD
     Route: 048
  7. ZOCOR [Concomitant]
     Indication: BLOOD CHOLESTEROL INCREASED
     Dosage: 20 MG, QHS
     Route: 048
  8. TENORMIN [Concomitant]
     Indication: HYPERTENSION
     Dosage: 75 MG, QD
     Route: 048
  9. COUMADIN [Concomitant]
     Indication: ATRIAL FIBRILLATION
     Dosage: 2.5 MG, QD
     Route: 048
     Dates: start: 20050810
  10. ELAVIL [Concomitant]
     Dosage: 20 MG, QHS
     Route: 048
  11. REGLAN [Concomitant]
     Dosage: 10 MG, BID
     Route: 048
  12. ACTONEL [Concomitant]
     Dosage: 35 MG, QW
     Route: 048
  13. LOPROX [Concomitant]
     Indication: ONYCHOMYCOSIS
     Dosage: UNK, BID
     Route: 061
  14. AMOXICILLIN [Concomitant]
     Indication: ANTIBIOTIC PROPHYLAXIS
     Dosage: UNK, PRN
     Route: 048
  15. ASPIRIN [Concomitant]
     Dosage: 81 MG, QD
     Route: 048
  16. CALCIUM WITH VITAMIN D [Concomitant]
     Dosage: 1 DF, TID
     Route: 048
  17. VITAMIN B COMPLEX CAP [Concomitant]
     Dosage: 1 DF, QD
     Route: 048

REACTIONS (8)
  - ASTHENIA [None]
  - ATRIAL FIBRILLATION [None]
  - BLOOD ELECTROLYTES ABNORMAL [None]
  - BLOOD GLUCOSE DECREASED [None]
  - DEATH [None]
  - FLUID RETENTION [None]
  - HYPONATRAEMIA [None]
  - MALAISE [None]
